FAERS Safety Report 7878459-7 (Version None)
Quarter: 2011Q4

REPORT INFORMATION
  Report Type: 
  Country: None (occurrence: None)
  Receive Date: 20111028
  Receipt Date: 20111014
  Transmission Date: 20120403
  Serious: Yes (Hospitalization, Disabling, Other)
  Sender: FDA-Public Use
  Company Number: 2011MA000906

PATIENT
  Sex: Male
  Weight: 124.7392 kg

DRUGS (1)
  1. METOCLOPRAMIDE [Suspect]
     Indication: GASTROOESOPHAGEAL REFLUX DISEASE
     Dates: start: 20051014, end: 20080512

REACTIONS (5)
  - TARDIVE DYSKINESIA [None]
  - PAIN [None]
  - FEELING ABNORMAL [None]
  - INJURY [None]
  - ANXIETY [None]
